FAERS Safety Report 14305514 (Version 1)
Quarter: 2017Q4

REPORT INFORMATION
  Report Type: Spontaneous
  Country: US (occurrence: US)
  Receive Date: 20171219
  Receipt Date: 20171219
  Transmission Date: 20180321
  Serious: Yes (Hospitalization, Other)
  Sender: FDA-Public Use
  Company Number: US-OTSUKA-DJ20060634

PATIENT
  Age: 15 Year
  Sex: Female
  Weight: 72.56 kg

DRUGS (2)
  1. ABILIFY [Suspect]
     Active Substance: ARIPIPRAZOLE
     Indication: BIPOLAR DISORDER
     Dosage: UNK
     Route: 048
     Dates: start: 200512, end: 20060402
  2. ABILIFY [Suspect]
     Active Substance: ARIPIPRAZOLE
     Dosage: 30 DF, UNK
     Route: 048
     Dates: start: 20060403, end: 20060403

REACTIONS (7)
  - Blood pressure decreased [Unknown]
  - Overdose [Unknown]
  - Consciousness fluctuating [Recovering/Resolving]
  - Seizure [Unknown]
  - Pallor [Unknown]
  - Loss of consciousness [Recovering/Resolving]
  - Cardiac arrest [Recovered/Resolved]

NARRATIVE: CASE EVENT DATE: 20060403
